FAERS Safety Report 9335356 (Version 1)
Quarter: 2013Q2

REPORT INFORMATION
  Report Type: Report from Study
  Country: CA (occurrence: CA)
  Receive Date: 20130606
  Receipt Date: 20130606
  Transmission Date: 20140414
  Serious: Yes (Other)
  Sender: FDA-Public Use
  Company Number: PHHY2013CA057059

PATIENT
  Sex: Female

DRUGS (5)
  1. ACLASTA [Suspect]
     Indication: OSTEOPOROSIS
     Dosage: UNK
     Route: 042
     Dates: start: 20080417
  2. ACLASTA [Suspect]
     Dosage: UNK
     Route: 042
     Dates: start: 20090423
  3. ACLASTA [Suspect]
     Dosage: UNK
     Route: 042
     Dates: start: 20100429
  4. ACLASTA [Suspect]
     Dosage: UNK
     Route: 042
     Dates: start: 20110509
  5. ACLASTA [Suspect]
     Dosage: UNK
     Route: 042
     Dates: start: 20120501

REACTIONS (2)
  - Dementia Alzheimer^s type [Unknown]
  - Dementia [Unknown]
